APPROVED DRUG PRODUCT: LORATADINE AND PSEUDOEPHEDRINE SULFATE
Active Ingredient: LORATADINE; PSEUDOEPHEDRINE SULFATE
Strength: 5MG;120MG
Dosage Form/Route: TABLET, EXTENDED RELEASE;ORAL
Application: A076208 | Product #001
Applicant: HERITAGE PHARMA LABS INC
Approved: Jan 28, 2004 | RLD: No | RS: No | Type: DISCN